FAERS Safety Report 8722881 (Version 2)
Quarter: 2013Q4

REPORT INFORMATION
  Report Type: Spontaneous
  Country: FR (occurrence: FR)
  Receive Date: 20120814
  Receipt Date: 20131205
  Transmission Date: 20140711
  Serious: Yes (Hospitalization, Other)
  Sender: FDA-Public Use
  Company Number: FR-MERCK-1208FRA001958

PATIENT
  Age: 56 Year
  Sex: Male
  Weight: 92 kg

DRUGS (7)
  1. VICTRELIS [Suspect]
     Indication: HEPATITIS C
     Dosage: 800 MG, TID
     Route: 048
     Dates: start: 20110627
  2. VIRAFERONPEG [Suspect]
     Indication: HEPATITIS C
     Dosage: 120 MICROGRAM, QW
     Route: 058
     Dates: start: 20110531
  3. REBETOL [Suspect]
     Indication: HEPATITIS C
     Dosage: 1400 MG, QD
     Route: 048
     Dates: start: 20110531
  4. SEROPLEX [Concomitant]
     Indication: DEPRESSION
     Dosage: 5 MG, UNK
     Route: 048
     Dates: start: 2009, end: 20110721
  5. LASILIX [Concomitant]
     Indication: OEDEMA
     Dosage: 40 MG, QD
     Route: 048
     Dates: end: 20110721
  6. SPECIAFOLDINE [Concomitant]
     Indication: PRODUCT USED FOR UNKNOWN INDICATION
     Dosage: 3 DF, QAM
  7. AVLOCARDYL [Concomitant]
     Dosage: 40 MG, BID
     Route: 048

REACTIONS (1)
  - Hepatic encephalopathy [Recovered/Resolved]
